FAERS Safety Report 18938635 (Version 1)
Quarter: 2021Q1

REPORT INFORMATION
  Report Type: Spontaneous
  Country: US (occurrence: US)
  Receive Date: 20210225
  Receipt Date: 20210225
  Transmission Date: 20210420
  Serious: Yes (Death, Other)
  Sender: FDA-Public Use
  Company Number: US-GLAXOSMITHKLINE-US2021GSK053176

PATIENT
  Sex: Female

DRUGS (2)
  1. RANITIDINE. [Suspect]
     Active Substance: RANITIDINE
     Indication: ERUCTATION
     Dosage: 300 MG, QD
     Route: 065
     Dates: start: 201201, end: 201901
  2. RANITIDINE. [Suspect]
     Active Substance: RANITIDINE
     Indication: ERUCTATION
     Dosage: 300 MG, QD
     Route: 065
     Dates: start: 201201, end: 201901

REACTIONS (1)
  - Oesophageal carcinoma [Fatal]
